FAERS Safety Report 12668361 (Version 2)
Quarter: 2016Q4

REPORT INFORMATION
  Report Type: Report from Study
  Country: None (occurrence: US)
  Receive Date: 20160819
  Receipt Date: 20161006
  Transmission Date: 20170207
  Serious: Yes (Hospitalization)
  Sender: FDA-Public Use
  Company Number: US-ABBVIE-16K-163-1700283-00

PATIENT
  Age: 51 Year
  Sex: Female

DRUGS (2)
  1. HUMIRA [Suspect]
     Active Substance: ADALIMUMAB
     Indication: CROHN^S DISEASE
     Route: 058
     Dates: start: 20141114
  2. METHOTREXATE. [Suspect]
     Active Substance: METHOTREXATE
     Indication: PRODUCT USED FOR UNKNOWN INDICATION
     Route: 065

REACTIONS (10)
  - Fracture [Unknown]
  - Sternal fracture [Recovering/Resolving]
  - Hand fracture [Recovering/Resolving]
  - Dizziness [Recovered/Resolved]
  - Rib fracture [Recovering/Resolving]
  - Wrist fracture [Recovering/Resolving]
  - Tremor [Recovered/Resolved]
  - Road traffic accident [Unknown]
  - Loss of consciousness [Recovered/Resolved]
  - Injury [Unknown]

NARRATIVE: CASE EVENT DATE: 2016
